FAERS Safety Report 20643564 (Version 5)
Quarter: 2023Q1

REPORT INFORMATION
  Report Type: Spontaneous
  Country: US (occurrence: US)
  Receive Date: 20220328
  Receipt Date: 20230227
  Transmission Date: 20230418
  Serious: Yes (Other)
  Sender: FDA-Public Use
  Company Number: US-PFIZER INC-202200419913

PATIENT
  Age: 57 Year
  Sex: Female
  Weight: 68.481 kg

DRUGS (3)
  1. IBRANCE [Suspect]
     Active Substance: PALBOCICLIB
     Indication: Breast cancer female
     Dosage: 75 MG, 1X/DAY
     Route: 048
     Dates: start: 201604, end: 202302
  2. IBRANCE [Suspect]
     Active Substance: PALBOCICLIB
     Indication: Breast cancer metastatic
  3. LETROZOLE [Concomitant]
     Active Substance: LETROZOLE
     Indication: Breast cancer metastatic
     Dosage: UNK
     Route: 048
     Dates: start: 201508, end: 202212

REACTIONS (7)
  - Optic nerve injury [Unknown]
  - Neoplasm progression [Unknown]
  - Psychiatric symptom [Unknown]
  - Back injury [Unknown]
  - Fatigue [Unknown]
  - Motion sickness [Unknown]
  - Asthenopia [Unknown]
